FAERS Safety Report 20297614 (Version 2)
Quarter: 2023Q1

REPORT INFORMATION
  Report Type: Spontaneous
  Country: US (occurrence: None)
  Receive Date: 20220105
  Receipt Date: 20230108
  Transmission Date: 20230418
  Serious: No
  Sender: FDA-Public Use
  Company Number: US-ROCHE-2752692

PATIENT
  Sex: Male

DRUGS (2)
  1. HEMLIBRA [Suspect]
     Active Substance: EMICIZUMAB-KXWH
     Indication: Factor VIII deficiency
     Dosage: USE?(2X 150MG) + (2X 60MG) FOR EACH DOSE. INJECT 1.4ML IN 2 DIFFERENT INJECTION SITES FOR A TOTAL OF
     Route: 058
     Dates: start: 201901
  2. ELOCTATE [Concomitant]
     Active Substance: EFMOROCTOCOG ALFA
     Indication: Factor VIII deficiency
     Dosage: INFUSE ~ 3200 UNITS (+/-10%) INTRAVENOUSLY AS NEEDED FOR BLEEDING
     Route: 017
     Dates: start: 201801

REACTIONS (2)
  - Haemorrhage [Unknown]
  - Abscess limb [Unknown]

NARRATIVE: CASE EVENT DATE: 20221008
